FAERS Safety Report 26067350 (Version 2)
Quarter: 2025Q4

REPORT INFORMATION
  Report Type: Spontaneous
  Country: CA (occurrence: CA)
  Receive Date: 20251120
  Receipt Date: 20251125
  Transmission Date: 20260119
  Serious: Yes (Other)
  Sender: TEVA
  Company Number: CA-TEVA-VS-3393597

PATIENT
  Sex: Female

DRUGS (4)
  1. FULVESTRANT [Suspect]
     Active Substance: FULVESTRANT
     Indication: Ovarian cancer metastatic
     Route: 065
  2. FULVESTRANT [Suspect]
     Active Substance: FULVESTRANT
     Indication: Ovarian cancer metastatic
     Dosage: DOSE FORM: SOLUTION INTRAMUSCULAR
     Route: 065
  3. LETROZOLE [Suspect]
     Active Substance: LETROZOLE
     Indication: Ovarian cancer metastatic
     Route: 065
  4. LETROZOLE [Suspect]
     Active Substance: LETROZOLE
     Indication: Ovarian cancer metastatic
     Route: 065

REACTIONS (3)
  - Ovarian cancer metastatic [Unknown]
  - Off label use [Unknown]
  - Malignant neoplasm progression [Unknown]
